FAERS Safety Report 9818820 (Version 1)
Quarter: 2014Q1

REPORT INFORMATION
  Report Type: Spontaneous
  Country: US (occurrence: None)
  Receive Date: 20140114
  Receipt Date: 20140114
  Transmission Date: 20141002
  Serious: No
  Sender: FDA-Public Use
  Company Number: None

PATIENT
  Age: 65 Year
  Sex: Male

DRUGS (16)
  1. INLYTA 5 MG [Suspect]
     Indication: RENAL CANCER
     Dosage: 1 TABLET BID ORAL
     Route: 048
     Dates: start: 201302
  2. GLIPIZIDE [Concomitant]
  3. PYRIDOSTIGMINE BROMIDE [Concomitant]
  4. AZATHIOPRINE [Concomitant]
  5. HYDROXYCHLOROQUINE [Concomitant]
  6. FUROSEMIDE [Concomitant]
  7. WARFARIN [Concomitant]
  8. SIMVASTATIN [Concomitant]
  9. METOPROLOL [Concomitant]
  10. OMEPRAZOLE [Concomitant]
  11. ODANSETRON [Concomitant]
  12. CARBOXYMETHYLCELLULOSE [Concomitant]
  13. ASTEPRO [Concomitant]
  14. MEGESTROL [Concomitant]
  15. AMLODIPINE [Concomitant]
  16. LOMOTIL [Concomitant]

REACTIONS (2)
  - Diarrhoea [None]
  - Alopecia [None]
